FAERS Safety Report 6139996-9 (Version None)
Quarter: 2009Q1

REPORT INFORMATION
  Report Type: 
  Country: None (occurrence: None)
  Receive Date: 20090324
  Receipt Date: 20090313
  Transmission Date: 20090719
  Serious: Yes (Other)
  Sender: FDA-Public Use
  Company Number: 8043373

PATIENT
  Age: 74 Year
  Sex: Male

DRUGS (6)
  1. THEOPHYLLINE [Suspect]
     Indication: ASTHMA
  2. PREDNISOLONE [Suspect]
     Indication: ASTHMA
     Dosage: 10 MG /D PO
     Route: 048
     Dates: start: 19990101
  3. LEUKOTRIENE RECEPTOR ANTAGONIST [Concomitant]
  4. INHALED STEROID (FP-DPI), 800 MCG [Concomitant]
  5. PMS-SODIUM CROMOGLYCATE [Concomitant]
  6. BETA-2 AGONIST (SALBUTAMOL SULFATE) [Concomitant]

REACTIONS (8)
  - ALLERGIC GRANULOMATOUS ANGIITIS [None]
  - BLOOD IMMUNOGLOBULIN E INCREASED [None]
  - DUODENAL ULCER [None]
  - GASTRITIS EROSIVE [None]
  - HEMIPLEGIA [None]
  - HYPOAESTHESIA [None]
  - IIIRD NERVE PARALYSIS [None]
  - RHEUMATOID FACTOR INCREASED [None]
